FAERS Safety Report 4433406-5 (Version None)
Quarter: 2004Q3

REPORT INFORMATION
  Report Type: 
  Country: None (occurrence: None)
  Receive Date: 20040824
  Receipt Date: 20040816
  Transmission Date: 20050211
  Serious: Yes (Hospitalization, Other)
  Sender: FDA-Public Use
  Company Number: KII-2004-0013087

PATIENT
  Age: 19 Year
  Sex: Female

DRUGS (4)
  1. MORPHINE SULFATE [Suspect]
     Dosage: ORAL
     Route: 048
  2. METAMFETAMINE (METAMFETAMINE) [Suspect]
     Dosage: INHALATION
     Route: 055
  3. BENZODIAZEPINE DERIVATIVES () [Suspect]
  4. TETRAHYDROCANNABINOL (TETRAHYDROCANNABINOL) [Suspect]

REACTIONS (12)
  - AGITATION [None]
  - ANTICHOLINERGIC SYNDROME [None]
  - ANURIA [None]
  - BLOOD CREATINE PHOSPHOKINASE INCREASED [None]
  - BLOOD PRESSURE DIASTOLIC DECREASED [None]
  - DRY MOUTH [None]
  - DRY SKIN [None]
  - FLUSHING [None]
  - GENERALISED OEDEMA [None]
  - POLYSUBSTANCE ABUSE [None]
  - SINUS TACHYCARDIA [None]
  - WHITE BLOOD CELL COUNT INCREASED [None]
